FAERS Safety Report 25908167 (Version 1)
Quarter: 2025Q4

REPORT INFORMATION
  Report Type: Spontaneous
  Country: CA (occurrence: CA)
  Receive Date: 20251010
  Receipt Date: 20251010
  Transmission Date: 20260118
  Serious: Yes (Other)
  Sender: PFIZER
  Company Number: CA-PFIZER INC-202500200715

PATIENT
  Age: 65 Year
  Sex: Male

DRUGS (2)
  1. RUXIENCE [Suspect]
     Active Substance: RITUXIMAB-PVVR
     Indication: Systemic scleroderma
     Dosage: 1000 MG,DAY 1 AND 15
     Route: 042
     Dates: start: 20250409, end: 20250423
  2. RUXIENCE [Suspect]
     Active Substance: RITUXIMAB-PVVR
     Dosage: 1000 MG, DAY 1 AND 15
     Dates: start: 20250423

REACTIONS (1)
  - Transurethral prostatectomy [Unknown]

NARRATIVE: CASE EVENT DATE: 20251006
